FAERS Safety Report 8484366-1 (Version None)
Quarter: 2012Q3

REPORT INFORMATION
  Report Type: 
  Country: None (occurrence: None)
  Receive Date: 20120703
  Receipt Date: 20120627
  Transmission Date: 20120928
  Serious: Yes (Other)
  Sender: FDA-Public Use
  Company Number: PHHY2012BR056067

PATIENT
  Sex: Female
  Weight: 60 kg

DRUGS (1)
  1. CATAFLAM [Suspect]
     Indication: PHARYNGEAL INFLAMMATION
     Dosage: UNK UKN, UNK
     Route: 048

REACTIONS (2)
  - EYE SWELLING [None]
  - HEADACHE [None]
